FAERS Safety Report 9915819 (Version 1)
Quarter: 2014Q1

REPORT INFORMATION
  Report Type: Spontaneous
  Country: FR (occurrence: None)
  Receive Date: 20140218
  Receipt Date: 20140218
  Transmission Date: 20141002
  Serious: Yes (Hospitalization, Other)
  Sender: FDA-Public Use
  Company Number: DSM-2014-00134

PATIENT
  Age: 65 Year
  Sex: Male

DRUGS (3)
  1. ALTEIS [Suspect]
     Indication: HYPERTENSION
     Dosage: 20 MG (20 MG, 1 IN 1 D), ORAL
     Route: 048
     Dates: start: 201304, end: 20131022
  2. LEVOTHYROX (LEVOTHYROXINE SODIUM) (125 MICROGRAM, TABLET) [Concomitant]
  3. TAHOR (ATORVASTATIN CALCIUM) (10 MILLIGRAM, TABLET) (ATORVASTATIN CALCIUM) [Concomitant]

REACTIONS (5)
  - Loss of consciousness [None]
  - Hypotension [None]
  - Haemolytic anaemia [None]
  - Malaise [None]
  - Anaemia macrocytic [None]
